FAERS Safety Report 23745626 (Version 1)
Quarter: 2024Q2

REPORT INFORMATION
  Report Type: Spontaneous
  Country: CN (occurrence: CN)
  Receive Date: 20240416
  Receipt Date: 20240416
  Transmission Date: 20240716
  Serious: Yes (Life-Threatening, Other)
  Sender: FDA-Public Use
  Company Number: CN-ALKEM LABORATORIES LIMITED-CN-ALKEM-2024-03260

PATIENT
  Age: 32 Year
  Sex: Female

DRUGS (5)
  1. CLOZAPINE [Suspect]
     Active Substance: CLOZAPINE
     Indication: Schizophrenia
     Dosage: 5 GRAM, (200 X 5MILLIGRAM)
     Route: 048
  2. CLOZAPINE [Suspect]
     Active Substance: CLOZAPINE
     Dosage: 100 MILLIGRAM, QD
     Route: 048
  3. CLOZAPINE [Suspect]
     Active Substance: CLOZAPINE
     Dosage: 50 MILLIGRAM, QD
     Route: 048
  4. ARIPIPRAZOLE [Suspect]
     Active Substance: ARIPIPRAZOLE
     Indication: Schizophrenia
     Dosage: 20 MILLIGRAM, QD
     Route: 065
  5. LITHIUM CARBONATE [Suspect]
     Active Substance: LITHIUM CARBONATE
     Indication: Schizophrenia
     Dosage: UNK
     Route: 065

REACTIONS (24)
  - Venous oxygen saturation increased [Recovering/Resolving]
  - Toxicity to various agents [Recovering/Resolving]
  - Cardiac output increased [Recovering/Resolving]
  - Interleukin level increased [Recovering/Resolving]
  - Fibrin D dimer increased [Recovering/Resolving]
  - Hypoproteinaemia [Recovering/Resolving]
  - Troponin T increased [Recovering/Resolving]
  - Procalcitonin increased [Recovering/Resolving]
  - Hypokalaemia [Recovering/Resolving]
  - White blood cell count increased [Recovering/Resolving]
  - Neutrophilia [Recovering/Resolving]
  - Hyponatraemia [Recovering/Resolving]
  - Coma [Recovering/Resolving]
  - Hypoxia [Recovering/Resolving]
  - Metabolic acidosis [Recovering/Resolving]
  - Haemodynamic instability [Recovering/Resolving]
  - Tachycardia [Recovering/Resolving]
  - Drug level increased [Recovering/Resolving]
  - Anaemia [Recovering/Resolving]
  - Hypotension [Recovering/Resolving]
  - Sinus tachycardia [Recovering/Resolving]
  - Respiratory rate increased [Unknown]
  - Overdose [Unknown]
  - Exposure during pregnancy [Unknown]
